FAERS Safety Report 6709139-9 (Version None)
Quarter: 2010Q2

REPORT INFORMATION
  Report Type: 
  Country: None (occurrence: None)
  Receive Date: 20100503
  Receipt Date: 20100503
  Transmission Date: 20101027
  Serious: Yes (Hospitalization)
  Sender: FDA-Public Use
  Company Number: None

PATIENT
  Age: 63 Year
  Sex: Male
  Weight: 120 kg

DRUGS (2)
  1. MORPHINE [Suspect]
     Indication: PAIN
     Dosage: 15 MG PRN PO
     Route: 048
     Dates: start: 20080620, end: 20100430
  2. DIAZEPAM [Suspect]
     Indication: ANXIETY
     Dosage: 10 MG QID PO
     Route: 048
     Dates: start: 20020524, end: 20100430

REACTIONS (3)
  - LETHARGY [None]
  - OVERDOSE [None]
  - SOMNOLENCE [None]
